APPROVED DRUG PRODUCT: AVAPRO
Active Ingredient: IRBESARTAN
Strength: 300MG
Dosage Form/Route: TABLET;ORAL
Application: N020757 | Product #003 | TE Code: AB
Applicant: SANOFI AVENTIS US LLC
Approved: Sep 30, 1997 | RLD: Yes | RS: Yes | Type: RX